FAERS Safety Report 6971792-2 (Version None)
Quarter: 2010Q3

REPORT INFORMATION
  Report Type: 
  Country: None (occurrence: None)
  Receive Date: 20100908
  Receipt Date: 20100903
  Transmission Date: 20110219
  Serious: Yes (Disabling, Other)
  Sender: FDA-Public Use
  Company Number: GB-MERCK-1009GBR00022

PATIENT
  Age: 72 Year
  Sex: Male
  Weight: 77 kg

DRUGS (5)
  1. ZETIA [Suspect]
     Indication: HYPERCHOLESTEROLAEMIA
     Route: 048
     Dates: start: 20091021, end: 20100322
  2. BENDROFLUMETHIAZIDE [Concomitant]
     Indication: HYPERTENSION
     Route: 048
     Dates: start: 20080218
  3. BETAHISTINE [Concomitant]
     Route: 048
     Dates: start: 20100427
  4. DOXAZOSIN MESYLATE [Concomitant]
     Route: 048
     Dates: start: 20090826
  5. RAMIPRIL [Concomitant]
     Route: 048
     Dates: start: 20080915

REACTIONS (2)
  - PAIN IN EXTREMITY [None]
  - PRURITUS [None]
